FAERS Safety Report 24818965 (Version 1)
Quarter: 2025Q1

REPORT INFORMATION
  Report Type: Spontaneous
  Country: FR (occurrence: FR)
  Receive Date: 20250108
  Receipt Date: 20250108
  Transmission Date: 20250409
  Serious: Yes (Other)
  Sender: BAYER HEALTHCARE PHARMACEUTICALS INC.
  Company Number: None

PATIENT
  Age: 27 Year
  Sex: Male
  Weight: 54 kg

DRUGS (6)
  1. MOXIFLOXACIN HYDROCHLORIDE [Suspect]
     Active Substance: MOXIFLOXACIN HYDROCHLORIDE
     Indication: Pulmonary tuberculosis
     Dosage: 400 MG, QD
     Route: 048
     Dates: start: 20240222, end: 20241107
  2. RIFAMPIN [Suspect]
     Active Substance: RIFAMPIN
     Indication: Pulmonary tuberculosis
     Dosage: 400 MG, QD
     Route: 048
     Dates: start: 20240222, end: 20241107
  3. PYRAZINAMIDE [Suspect]
     Active Substance: PYRAZINAMIDE
     Indication: Pulmonary tuberculosis
     Dosage: 400 MG, QD
     Route: 048
     Dates: start: 20240222, end: 20241107
  4. GABAPENTIN [Suspect]
     Active Substance: GABAPENTIN
     Indication: Axonal neuropathy
     Dosage: 300 MG, QD
     Route: 048
     Dates: start: 20240319, end: 20241107
  5. GABAPENTIN [Suspect]
     Active Substance: GABAPENTIN
     Indication: Axonal neuropathy
     Route: 048
     Dates: start: 20241108, end: 20241205
  6. GABAPENTIN [Suspect]
     Active Substance: GABAPENTIN
     Indication: Axonal neuropathy
     Dosage: 300 MG /J
     Route: 048
     Dates: start: 20241206, end: 20241220

REACTIONS (1)
  - Rhabdomyolysis [Recovered/Resolved]

NARRATIVE: CASE EVENT DATE: 20241107
